FAERS Safety Report 10717455 (Version 4)
Quarter: 2015Q1

REPORT INFORMATION
  Report Type: Spontaneous
  Country: US (occurrence: US)
  Receive Date: 20150116
  Receipt Date: 20150216
  Transmission Date: 20150721
  Serious: Yes (Hospitalization)
  Sender: FDA-Public Use
  Company Number: US-009507513-1501USA002595

PATIENT
  Age: 35 Year
  Sex: Male

DRUGS (3)
  1. NASONEX [Suspect]
     Active Substance: MOMETASONE FUROATE
     Indication: RHINITIS ALLERGIC
     Dosage: 2 SPRAYS IN EACH NOSTRIL ONCE DAILY
     Route: 055
  2. XARELTO [Concomitant]
     Active Substance: RIVAROXABAN
  3. NIASPAN [Concomitant]
     Active Substance: NIACIN

REACTIONS (9)
  - Thrombosis [Unknown]
  - Product odour abnormal [Unknown]
  - Flushing [Unknown]
  - Chest discomfort [Unknown]
  - Hypersensitivity [Not Recovered/Not Resolved]
  - Lacrimation increased [Not Recovered/Not Resolved]
  - Dyspnoea [Unknown]
  - Vomiting [Unknown]
  - Nasal polyps [Not Recovered/Not Resolved]

NARRATIVE: CASE EVENT DATE: 20150108
